FAERS Safety Report 10516701 (Version 2)
Quarter: 2015Q3

REPORT INFORMATION
  Report Type: Spontaneous
  Country: US (occurrence: US)
  Receive Date: 20141014
  Receipt Date: 20150818
  Transmission Date: 20151125
  Serious: No
  Sender: FDA-Public Use
  Company Number: US-GILEAD-2014-0117986

PATIENT
  Age: 65 Year
  Sex: Female

DRUGS (2)
  1. SILDENAFIL. [Concomitant]
     Active Substance: SILDENAFIL
  2. LETAIRIS [Suspect]
     Active Substance: AMBRISENTAN
     Indication: PRODUCT USED FOR UNKNOWN INDICATION
     Dosage: 5 MG, QD
     Route: 065
     Dates: start: 20140922

REACTIONS (7)
  - Nausea [Unknown]
  - Back pain [Unknown]
  - Dyspnoea [Unknown]
  - Dizziness [Unknown]
  - Tremor [Unknown]
  - Myalgia [Unknown]
  - Headache [Unknown]
